FAERS Safety Report 13717153 (Version 1)
Quarter: 2017Q3

REPORT INFORMATION
  Report Type: Spontaneous
  Country: US (occurrence: US)
  Receive Date: 20170705
  Receipt Date: 20170705
  Transmission Date: 20171127
  Serious: Yes (Hospitalization)
  Sender: FDA-Public Use
  Company Number: US-FRESENIUS KABI-FK201705599

PATIENT
  Age: 63 Year
  Sex: Female

DRUGS (2)
  1. STEROID UNSPECIFIED [Suspect]
     Active Substance: UNSPECIFIED INGREDIENT
     Indication: VIRAL UPPER RESPIRATORY TRACT INFECTION
     Route: 048
  2. METHYLPREDNISOLONE (MANUFACTURER UNKNOWN) [Suspect]
     Active Substance: METHYLPREDNISOLONE
     Indication: ANTIINFLAMMATORY THERAPY
     Route: 042

REACTIONS (3)
  - Paraparesis [Unknown]
  - Sensory loss [Unknown]
  - Condition aggravated [Unknown]
